FAERS Safety Report 5723518-8 (Version None)
Quarter: 2008Q2

REPORT INFORMATION
  Report Type: 
  Country: None (occurrence: None)
  Receive Date: 20080425
  Receipt Date: 20080415
  Transmission Date: 20081010
  Serious: Yes (Hospitalization)
  Sender: FDA-Public Use
  Company Number: 19128

PATIENT
  Sex: Female

DRUGS (1)
  1. ACYCLOVIR SODIUM [Suspect]

REACTIONS (4)
  - ASTHENIA [None]
  - HEADACHE [None]
  - LIP OEDEMA [None]
  - URTICARIA [None]
